FAERS Safety Report 6066397-4 (Version None)
Quarter: 2009Q1

REPORT INFORMATION
  Report Type: 
  Country: None (occurrence: None)
  Receive Date: 20090205
  Receipt Date: 20090130
  Transmission Date: 20090719
  Serious: Yes (Other)
  Sender: FDA-Public Use
  Company Number: AU-BAYER-200912239GPV

PATIENT
  Sex: Female

DRUGS (1)
  1. CANESTEN (CLOTRIMAZOLE) VAGINAL CREAM [Suspect]
     Indication: VULVOVAGINAL CANDIDIASIS
     Route: 067

REACTIONS (1)
  - ABORTION SPONTANEOUS [None]
